FAERS Safety Report 4406595-6 (Version None)
Quarter: 2004Q3

REPORT INFORMATION
  Report Type: 
  Country: None (occurrence: None)
  Receive Date: 20040723
  Receipt Date: 20040712
  Transmission Date: 20050211
  Serious: Yes (Other)
  Sender: FDA-Public Use
  Company Number: FR-GLAXOSMITHKLINE-B0338784A

PATIENT
  Age: 63 Year
  Sex: Female
  Weight: 84 kg

DRUGS (3)
  1. AVANDIA [Suspect]
     Indication: DIABETES MELLITUS NON-INSULIN-DEPENDENT
     Dosage: 8MG PER DAY
     Route: 048
     Dates: start: 20030221, end: 20040614
  2. DILTIAZEM HYDROCHLORIDE [Concomitant]
     Route: 048
  3. DIET [Concomitant]

REACTIONS (1)
  - WEIGHT INCREASED [None]
